FAERS Safety Report 15296583 (Version 1)
Quarter: 2018Q3

REPORT INFORMATION
  Report Type: Spontaneous
  Country: US (occurrence: US)
  Receive Date: 20180820
  Receipt Date: 20180820
  Transmission Date: 20181010
  Serious: Yes (Death, Other)
  Sender: FDA-Public Use
  Company Number: US-ALEXION PHARMACEUTICALS INC.-A201810631

PATIENT
  Age: 23 Year
  Sex: Male

DRUGS (3)
  1. SOLIRIS [Suspect]
     Active Substance: ECULIZUMAB
     Dosage: 900 MG, SINGLE
     Route: 042
  2. SOLIRIS [Suspect]
     Active Substance: ECULIZUMAB
     Indication: PRODUCT USED FOR UNKNOWN INDICATION
     Dosage: 900 MG, UNK
     Route: 042
  3. SOLIRIS [Suspect]
     Active Substance: ECULIZUMAB
     Dosage: 900 MG, SINGLE
     Route: 042

REACTIONS (11)
  - Cardiac arrest [Unknown]
  - Fungaemia [Fatal]
  - Tachycardia [Unknown]
  - Ejection fraction abnormal [Unknown]
  - Vomiting [Unknown]
  - Shock [Unknown]
  - Hypoxia [Unknown]
  - Hypotension [Unknown]
  - Pneumonia cryptococcal [Fatal]
  - Peritoneal haemorrhage [Unknown]
  - Septic shock [Unknown]
